FAERS Safety Report 6201197-3 (Version None)
Quarter: 2009Q2

REPORT INFORMATION
  Report Type: 
  Country: None (occurrence: None)
  Receive Date: 20090520
  Receipt Date: 20090427
  Transmission Date: 20091009
  Serious: Yes (Death, Hospitalization, Other)
  Sender: FDA-Public Use
  Company Number: KV200900391

PATIENT
  Age: 77 Year
  Sex: Female

DRUGS (9)
  1. MORPHINE SULFATE [Suspect]
     Indication: CANCER PAIN
     Dosage: 15 MG, TID, ORAL
     Route: 048
  2. PROPRANOLOL [Concomitant]
  3. CARDIZEM [Concomitant]
  4. SYTHROID (LEVOTHYROXINE SODIUM) [Concomitant]
  5. NEXIUM [Concomitant]
  6. MULTIVITAMIN /00831701/ (VITAMINS NOS) [Concomitant]
  7. DECADRON [Concomitant]
  8. DUONEB [Concomitant]
  9. XANAX [Concomitant]

REACTIONS (15)
  - ATRIAL FIBRILLATION [None]
  - DECREASED APPETITE [None]
  - FATIGUE [None]
  - HYPOVENTILATION [None]
  - LETHARGY [None]
  - NEUTROPENIA [None]
  - OLIGURIA [None]
  - PRODUCT QUALITY ISSUE [None]
  - RASH GENERALISED [None]
  - RASH MACULAR [None]
  - RESPIRATORY ARREST [None]
  - RESPIRATORY FAILURE [None]
  - RESPIRATORY RATE DECREASED [None]
  - SOMNOLENCE [None]
  - UNRESPONSIVE TO STIMULI [None]
